FAERS Safety Report 14917971 (Version 1)
Quarter: 2018Q2

REPORT INFORMATION
  Report Type: Spontaneous
  Country: FR (occurrence: FR)
  Receive Date: 20180521
  Receipt Date: 20180521
  Transmission Date: 20180711
  Serious: Yes (Other)
  Sender: FDA-Public Use
  Company Number: FR-MERCK KGAA-2048109

PATIENT
  Age: 52 Year
  Sex: Female

DRUGS (1)
  1. NOVOTHYROX [Suspect]
     Active Substance: LEVOTHYROXINE SODIUM
     Indication: POST PROCEDURAL HYPOTHYROIDISM

REACTIONS (23)
  - Paraesthesia [None]
  - Cardiomyopathy [None]
  - Bradyphrenia [None]
  - Red blood cell sedimentation rate increased [None]
  - Hyperhidrosis [Recovering/Resolving]
  - Migraine [Recovering/Resolving]
  - Attention deficit/hyperactivity disorder [Recovering/Resolving]
  - Burning mouth syndrome [Recovering/Resolving]
  - Muscle spasms [Recovering/Resolving]
  - Alopecia [Recovering/Resolving]
  - Diarrhoea [None]
  - Amnesia [None]
  - Pain in extremity [None]
  - Gastrointestinal disorder [None]
  - Asthenia [Recovering/Resolving]
  - Fatigue [None]
  - Marital problem [None]
  - Flatulence [None]
  - Insomnia [None]
  - Cardiac failure [None]
  - Eructation [Recovering/Resolving]
  - Feeling abnormal [Recovering/Resolving]
  - Memory impairment [None]

NARRATIVE: CASE EVENT DATE: 2017
